FAERS Safety Report 11193137 (Version 1)
Quarter: 2015Q2

REPORT INFORMATION
  Report Type: Spontaneous
  Country: JP (occurrence: JP)
  Receive Date: 20150616
  Receipt Date: 20150616
  Transmission Date: 20150821
  Serious: Yes (Other)
  Sender: FDA-Public Use
  Company Number: JP-SHIONOGI, INC-2015000197

PATIENT
  Age: 35 Year
  Sex: Male
  Weight: 60.75 kg

DRUGS (15)
  1. POLARAMINE [Concomitant]
     Active Substance: DEXCHLORPHENIRAMINE MALEATE
     Indication: ALLERGY PROPHYLAXIS
     Route: 041
  2. BIOFERMIN                          /01617201/ [Concomitant]
     Active Substance: BACILLUS SUBTILIS\LACTOBACILLUS ACIDOPHILUS\STREPTOCOCCUS FAECAIS
     Indication: PROPHYLAXIS AGAINST DIARRHOEA
     Route: 065
  3. ALLELOCK [Concomitant]
     Active Substance: OLOPATADINE HYDROCHLORIDE
     Route: 065
  4. FINIBAX [Suspect]
     Active Substance: DORIPENEM MONOHYDRATE
     Indication: FEBRILE NEUTROPENIA
     Dosage: 1 G, QD
     Route: 041
     Dates: start: 20141218, end: 20141218
  5. FINIBAX [Suspect]
     Active Substance: DORIPENEM MONOHYDRATE
     Dosage: 1 G, TID
     Route: 041
     Dates: start: 20141219, end: 20141219
  6. BOSULIF [Suspect]
     Active Substance: BOSUTINIB MONOHYDRATE
     Indication: CHRONIC MYELOID LEUKAEMIA
     Dosage: 500 MG, UNK
     Route: 048
     Dates: start: 20141210, end: 20141217
  7. PREDONINE [Concomitant]
     Active Substance: PREDNISOLONE\PREDNISOLONE ACETATE\PREDNISOLONE SODIUM SUCCINATE
     Route: 065
  8. HALIZON [Concomitant]
     Indication: ANTIBIOTIC THERAPY
     Dosage: 100 MG, TID
     Route: 048
     Dates: start: 20141209
  9. LOPERAMIDE [Concomitant]
     Active Substance: LOPERAMIDE
     Indication: PROPHYLAXIS AGAINST DIARRHOEA
     Dosage: 1 MG, QD
     Route: 048
     Dates: start: 20141209, end: 20150104
  10. GASTER [Concomitant]
     Active Substance: FAMOTIDINE
     Route: 065
  11. FINIBAX [Suspect]
     Active Substance: DORIPENEM MONOHYDRATE
     Dosage: 1 G, QD
     Route: 041
     Dates: start: 20141220, end: 20141220
  12. BOSULIF [Suspect]
     Active Substance: BOSUTINIB MONOHYDRATE
     Dosage: 300 MG, UNK
     Route: 048
     Dates: start: 20141223, end: 20150104
  13. FEBURIC [Concomitant]
     Active Substance: FEBUXOSTAT
     Indication: HYPERURICAEMIA
     Dosage: 20 MG, QD
     Route: 048
     Dates: start: 20141209
  14. POLYMYXIN B SULFATE. [Concomitant]
     Active Substance: POLYMYXIN B SULFATE
     Indication: ANTIBIOTIC THERAPY
     Dosage: 1 MILLION IU, TID
     Route: 048
     Dates: start: 20141209
  15. SELBEX [Concomitant]
     Active Substance: TEPRENONE
     Route: 065

REACTIONS (4)
  - Papilloedema [Unknown]
  - Diarrhoea [Not Recovered/Not Resolved]
  - Eye pain [Unknown]
  - Rash generalised [Recovered/Resolved]

NARRATIVE: CASE EVENT DATE: 20141219
